FAERS Safety Report 7831587-4 (Version None)
Quarter: 2011Q4

REPORT INFORMATION
  Report Type: 
  Country: None (occurrence: None)
  Receive Date: 20111021
  Receipt Date: 20111018
  Transmission Date: 20120403
  Serious: Yes (Congenital Anomaly)
  Sender: FDA-Public Use
  Company Number: US-AMGEN-USANI2011018557

PATIENT
  Age: 2 Year

DRUGS (11)
  1. METAMUCIL-2 [Concomitant]
     Dosage: 100 MG, UNK
     Route: 064
     Dates: start: 20070725, end: 20080422
  2. NAPROXEN [Concomitant]
     Dosage: UNK UNK, QD
     Route: 064
     Dates: start: 20070926, end: 20071009
  3. DOCUSATE [Concomitant]
     Dosage: 100 MG, UNK
     Route: 064
     Dates: start: 20070725, end: 20080422
  4. MULTI-VITAMINS [Concomitant]
     Dosage: UNK UNK, QD
     Route: 064
     Dates: start: 20070725, end: 20080422
  5. GUAIFENESIN [Concomitant]
     Dosage: UNK
     Route: 064
     Dates: start: 20071101, end: 20071107
  6. TYLENOL-500 [Concomitant]
     Dosage: UNK
     Route: 064
     Dates: start: 20071006, end: 20080422
  7. LAXATIVES [Concomitant]
     Dosage: UNK
     Route: 064
     Dates: start: 20070725, end: 20071010
  8. ETANERCEPT [Suspect]
     Dosage: 25 MG, QWK
     Route: 064
     Dates: start: 20070725, end: 20070808
  9. RHOGAM [Concomitant]
     Dosage: UNK UNK, QD
     Dates: start: 20080123, end: 20080123
  10. TYLENOL W/ CODEINE [Concomitant]
     Dosage: UNK UNK, QD
     Route: 064
     Dates: start: 20070926, end: 20080422
  11. CALCIUM CARBONATE [Concomitant]
     Dosage: UNK UNK, QWK
     Route: 064
     Dates: start: 20071101, end: 20080422

REACTIONS (1)
  - NEUROFIBROMATOSIS [None]
